FAERS Safety Report 19820589 (Version 1)
Quarter: 2021Q3

REPORT INFORMATION
  Report Type: Spontaneous
  Country: US (occurrence: US)
  Receive Date: 20210909
  Receipt Date: 20210909
  Transmission Date: 20211014
  Serious: Yes (Hospitalization)
  Sender: FDA-Public Use
  Company Number: None

PATIENT
  Age: 12 Month
  Sex: Male

DRUGS (4)
  1. VIGABATRIN 500 [Suspect]
     Active Substance: VIGABATRIN
     Indication: STATUS EPILEPTICUS
     Dosage: 3ML PO BID 3 DAYS THEN  10ML PO BID FOR 3 DAYS
     Route: 048
     Dates: start: 20210805
  2. TYLENOL [Concomitant]
     Active Substance: ACETAMINOPHEN
  3. PRILOSEC [Concomitant]
     Active Substance: OMEPRAZOLE MAGNESIUM
  4. IBUPROFEN. [Concomitant]
     Active Substance: IBUPROFEN

REACTIONS (2)
  - Product dose omission issue [None]
  - Seizure [None]

NARRATIVE: CASE EVENT DATE: 20210906
